FAERS Safety Report 10178142 (Version 1)
Quarter: 2014Q2

REPORT INFORMATION
  Report Type: Spontaneous
  Country: TW (occurrence: TW)
  Receive Date: 20140519
  Receipt Date: 20140519
  Transmission Date: 20141212
  Serious: Yes (Other)
  Sender: FDA-Public Use
  Company Number: TW-AMGEN INC.-TWNSP2014036093

PATIENT
  Age: 58 Year
  Sex: Female

DRUGS (1)
  1. ENBREL [Suspect]
     Indication: RHEUMATOID ARTHRITIS
     Dosage: 25 MG, ONCE EVERY 5 DAYS
     Route: 058
     Dates: start: 20140328, end: 20140502

REACTIONS (2)
  - Cataract [Unknown]
  - Postoperative wound infection [Unknown]
